FAERS Safety Report 8178323-2 (Version None)
Quarter: 2012Q1

REPORT INFORMATION
  Report Type: 
  Country: None (occurrence: None)
  Receive Date: 20120301
  Receipt Date: 20120223
  Transmission Date: 20120608
  Serious: Yes (Hospitalization, Congenital Anomaly, Other)
  Sender: FDA-Public Use
  Company Number: US-PFIZER INC-2011218694

PATIENT
  Sex: Female
  Weight: 3 kg

DRUGS (8)
  1. PROMETRIUM [Concomitant]
     Dosage: 200 MG, UNK
     Route: 064
     Dates: start: 20100627
  2. STADOL [Concomitant]
     Dosage: 1 MG, UNK
     Route: 064
     Dates: start: 20100627
  3. PROMETHAZINE [Concomitant]
     Dosage: 25 MG, UNK
     Route: 064
     Dates: start: 20100627
  4. MULTI-VITAMINS [Concomitant]
     Dosage: UNK
     Route: 064
     Dates: start: 20100902
  5. ROCEPHIN [Concomitant]
     Dosage: 1 G, UNK
     Route: 064
     Dates: start: 20100627
  6. SERTRALINE HYDROCHLORIDE [Suspect]
     Dosage: 50 MG ONE TABLET DAILY
     Route: 064
  7. CELESTONE [Concomitant]
     Dosage: 12 MG, UNK
     Route: 064
     Dates: start: 20100713
  8. PROCARDIA [Concomitant]
     Dosage: 10 MG, UNK
     Route: 064
     Dates: start: 20100627

REACTIONS (21)
  - CARDIAC FAILURE CONGESTIVE [None]
  - AORTIC VALVE STENOSIS [None]
  - HYPERTENSION [None]
  - FAILURE TO THRIVE [None]
  - AORTIC VALVE INCOMPETENCE [None]
  - COARCTATION OF THE AORTA [None]
  - HEART DISEASE CONGENITAL [None]
  - VENTRICULAR SEPTAL DEFECT [None]
  - JAUNDICE NEONATAL [None]
  - PATENT DUCTUS ARTERIOSUS [None]
  - OTITIS MEDIA [None]
  - CARDIOMEGALY [None]
  - TACHYPNOEA [None]
  - DEVELOPMENTAL DELAY [None]
  - MATERNAL EXPOSURE TIMING UNSPECIFIED [None]
  - RESPIRATORY DISTRESS [None]
  - ATRIAL SEPTAL DEFECT [None]
  - PULMONARY VASCULAR DISORDER [None]
  - CONGENITAL TRICUSPID VALVE INCOMPETENCE [None]
  - AORTA HYPOPLASIA [None]
  - TORTICOLLIS [None]
